FAERS Safety Report 24690721 (Version 1)
Quarter: 2024Q4

REPORT INFORMATION
  Report Type: Spontaneous
  Country: FI (occurrence: FI)
  Receive Date: 20241203
  Receipt Date: 20241203
  Transmission Date: 20250114
  Serious: Yes (Life-Threatening)
  Sender: TEVA
  Company Number: None

PATIENT
  Age: 52 Year
  Sex: Male

DRUGS (4)
  1. MONTELUKAST [Suspect]
     Active Substance: MONTELUKAST
     Indication: Asthma
     Dosage: 1 PIECE PER DAY, MONTELUKAST RATIOPHARM
     Route: 048
  2. Beclomet [Concomitant]
     Indication: Asthma
     Dosage: 4 DOSES IN A DAY, BECLOMET EASYHALER
     Route: 055
  3. ALVESCO [Concomitant]
     Active Substance: CICLESONIDE
     Indication: Asthma
     Dosage: 2-4 SERVINGS PER DAY /2-4 DOSES IN A DAY
     Route: 055
  4. ALBUTEROL SULFATE [Concomitant]
     Active Substance: ALBUTEROL SULFATE
     Indication: Asthma
     Dosage: 4 DOSES IN A DAY, BUVENTOL EASYHALER
     Route: 055

REACTIONS (7)
  - Psychotic disorder [Recovering/Resolving]
  - Product odour abnormal [Recovering/Resolving]
  - Product quality issue [Recovering/Resolving]
  - Schizophreniform disorder [Recovering/Resolving]
  - Ill-defined disorder [Recovering/Resolving]
  - Hypomania [Recovering/Resolving]
  - Mania [Recovering/Resolving]

NARRATIVE: CASE EVENT DATE: 20240901
